FAERS Safety Report 5744428-6 (Version None)
Quarter: 2008Q2

REPORT INFORMATION
  Report Type: 
  Country: None (occurrence: None)
  Receive Date: 20080520
  Receipt Date: 20080509
  Transmission Date: 20081010
  Serious: Yes (Other)
  Sender: FDA-Public Use
  Company Number: BR-ROCHE-564097

PATIENT
  Age: 40 Year
  Sex: Female
  Weight: 78 kg

DRUGS (2)
  1. XENICAL [Suspect]
     Indication: OBESITY
     Route: 048
     Dates: start: 20080419
  2. XENICAL [Suspect]
     Route: 048
     Dates: start: 20010101, end: 20020101

REACTIONS (4)
  - DIARRHOEA [None]
  - FLATULENCE [None]
  - STEATORRHOEA [None]
  - SURGERY [None]
